FAERS Safety Report 23792526 (Version 3)
Quarter: 2024Q3

REPORT INFORMATION
  Report Type: Report from Study
  Country: GB (occurrence: GB)
  Receive Date: 20240429
  Receipt Date: 20240708
  Transmission Date: 20241016
  Serious: Yes (Hospitalization, Other)
  Sender: JOHNSON AND JOHNSON
  Company Number: GB-JNJFOC-20240466214

PATIENT
  Age: 6 Decade
  Sex: Female

DRUGS (4)
  1. TREMFYA [Suspect]
     Active Substance: GUSELKUMAB
     Indication: Psoriasis
     Route: 058
     Dates: start: 20240416
  2. METHIMAZOLE [Concomitant]
     Active Substance: METHIMAZOLE
  3. PECTIN [Concomitant]
     Active Substance: PECTIN
  4. EMETINE [Concomitant]
     Active Substance: EMETINE

REACTIONS (3)
  - Thrombosis [Unknown]
  - Lower respiratory tract infection [Unknown]
  - Off label use [Unknown]

NARRATIVE: CASE EVENT DATE: 20240401
